FAERS Safety Report 20306050 (Version 1)
Quarter: 2022Q1

REPORT INFORMATION
  Report Type: Spontaneous
  Country: ES (occurrence: ES)
  Receive Date: 20220106
  Receipt Date: 20220106
  Transmission Date: 20220423
  Serious: Yes (Other)
  Sender: FDA-Public Use
  Company Number: ES-TEVA-2021-ES-1986793

PATIENT
  Age: 8 Year
  Sex: Female

DRUGS (1)
  1. OMEPRAZOLE [Interacting]
     Active Substance: OMEPRAZOLE
     Indication: Gastritis
     Dosage: UNK

REACTIONS (6)
  - Respiratory distress [Recovered/Resolved]
  - Anaphylactic reaction [Recovered/Resolved]
  - Angioedema [Recovered/Resolved]
  - Food interaction [Recovered/Resolved]
  - Urticaria [Recovered/Resolved]
  - Drug interaction [Recovered/Resolved]
